FAERS Safety Report 9279421 (Version 3)
Quarter: 2016Q4

REPORT INFORMATION
  Report Type: Spontaneous
  Country: US (occurrence: US)
  Receive Date: 20130508
  Receipt Date: 20161109
  Transmission Date: 20170207
  Serious: Yes (Hospitalization, Other)
  Sender: FDA-Public Use
  Company Number: US-009507513-1305USA001000

PATIENT
  Sex: Female

DRUGS (3)
  1. ALENDRONATE SODIUM. [Suspect]
     Active Substance: ALENDRONATE SODIUM
     Indication: PRODUCT USED FOR UNKNOWN INDICATION
     Dosage: 70 MG, QW
     Dates: start: 20090130
  2. FOSAMAX [Suspect]
     Active Substance: ALENDRONATE SODIUM
     Dosage: UNK, UNKNOWN
     Route: 048
     Dates: start: 2003, end: 2011
  3. FOSAMAX PLUS D [Suspect]
     Active Substance: ALENDRONATE SODIUM\CHOLECALCIFEROL
     Indication: PRODUCT USED FOR UNKNOWN INDICATION
     Dosage: UNK, UNKNOWN
     Route: 048

REACTIONS (14)
  - Haemorrhagic anaemia [Unknown]
  - Hip arthroplasty [Unknown]
  - Ulna fracture [Unknown]
  - Femur fracture [Unknown]
  - Road traffic accident [Unknown]
  - Cardiac murmur [Unknown]
  - Adverse event [Unknown]
  - Dyspnoea [Unknown]
  - Drug hypersensitivity [Unknown]
  - Drug hypersensitivity [Unknown]
  - Hypertension [Unknown]
  - Adverse event [Unknown]
  - Muscle spasms [Unknown]
  - Adverse event [Unknown]

NARRATIVE: CASE EVENT DATE: 2003
